FAERS Safety Report 20516241 (Version 1)
Quarter: 2022Q1

REPORT INFORMATION
  Report Type: Spontaneous
  Country: FR (occurrence: FR)
  Receive Date: 20220225
  Receipt Date: 20220225
  Transmission Date: 20220424
  Serious: Yes (Hospitalization, Other)
  Sender: FDA-Public Use
  Company Number: None

PATIENT
  Age: 73 Year
  Sex: Female

DRUGS (2)
  1. LETROZOLE [Suspect]
     Active Substance: LETROZOLE
     Indication: Breast cancer metastatic
     Dosage: UNIT DOSE 1 DOSAGE FORM
     Route: 048
     Dates: start: 20211227, end: 20220111
  2. ABEMACICLIB [Suspect]
     Active Substance: ABEMACICLIB
     Indication: Breast cancer metastatic
     Dosage: VERZENIOS 150 MG, FILM-COATED TABLETS, UNIT DOSE 2 DOSAGE FORM
     Route: 048
     Dates: start: 20211227, end: 20220106

REACTIONS (2)
  - Hyponatraemia [Recovering/Resolving]
  - Fatigue [Not Recovered/Not Resolved]

NARRATIVE: CASE EVENT DATE: 20220105
